FAERS Safety Report 22101002 (Version 7)
Quarter: 2023Q2

REPORT INFORMATION
  Report Type: Spontaneous
  Country: MY (occurrence: MY)
  Receive Date: 20230316
  Receipt Date: 20230514
  Transmission Date: 20230721
  Serious: Yes (Life-Threatening, Other)
  Sender: FDA-Public Use
  Company Number: MY-KYOWAKIRIN-2023AKK003736

PATIENT
  Age: 50 Year
  Sex: Male

DRUGS (4)
  1. DARBEPOETIN ALFA [Suspect]
     Active Substance: DARBEPOETIN ALFA
     Indication: Anaemia
     Dosage: 100 MCG
     Route: 058
     Dates: start: 20220802, end: 20220830
  2. DARBEPOETIN ALFA [Suspect]
     Active Substance: DARBEPOETIN ALFA
     Dosage: 120 MCG
     Route: 058
     Dates: start: 20220906, end: 20221011
  3. DARBEPOETIN ALFA [Suspect]
     Active Substance: DARBEPOETIN ALFA
     Dosage: 60 MCG
     Route: 058
     Dates: start: 20221122, end: 20221213
  4. DARBEPOETIN ALFA [Suspect]
     Active Substance: DARBEPOETIN ALFA
     Dosage: 160 MCG
     Route: 058
     Dates: start: 20221220, end: 20230211

REACTIONS (1)
  - Aplasia pure red cell [Unknown]
